FAERS Safety Report 18611221 (Version 1)
Quarter: 2020Q4

REPORT INFORMATION
  Report Type: Spontaneous
  Country: US (occurrence: US)
  Receive Date: 20201214
  Receipt Date: 20201214
  Transmission Date: 20210114
  Serious: No
  Sender: FDA-Public Use
  Company Number: US-PFIZER INC-2020381531

PATIENT
  Age: 88 Year
  Sex: Female
  Weight: 53.07 kg

DRUGS (1)
  1. LYRICA [Suspect]
     Active Substance: PREGABALIN
     Indication: NEUROPATHY PERIPHERAL
     Dosage: 75 MG, 2X/DAY (75MG TAKE IT WATER WATER BY MOUTH TWICE A DAY)
     Route: 048
     Dates: start: 2020

REACTIONS (2)
  - Increased appetite [Not Recovered/Not Resolved]
  - Weight increased [Unknown]
